FAERS Safety Report 17989476 (Version 1)
Quarter: 2020Q3

REPORT INFORMATION
  Report Type: Spontaneous
  Country: US (occurrence: US)
  Receive Date: 20200707
  Receipt Date: 20200707
  Transmission Date: 20201103
  Serious: Yes (Other)
  Sender: FDA-Public Use
  Company Number: US-FRESENIUS KABI-FK202006714

PATIENT
  Age: 73 Year
  Sex: Female

DRUGS (11)
  1. SULFAMETHOXAZOLE/TRIMETHOPRIM [Suspect]
     Active Substance: SULFAMETHOXAZOLE\TRIMETHOPRIM
     Indication: EYE INFECTION TOXOPLASMAL
     Route: 042
  2. TIMOLOL. [Concomitant]
     Active Substance: TIMOLOL
     Indication: INTRAOCULAR PRESSURE TEST
     Route: 061
  3. GLUCOSE 5% (MANUFACTURER UNKNOWN) [Suspect]
     Active Substance: DEXTROSE
     Indication: VEHICLE SOLUTION USE
     Dosage: UNK
     Route: 042
  4. LATANOPROST. [Concomitant]
     Active Substance: LATANOPROST
     Indication: INTRAOCULAR PRESSURE TEST
     Route: 061
  5. CYCLOPENTOLATE. [Concomitant]
     Active Substance: CYCLOPENTOLATE
     Indication: NECROTISING RETINITIS
  6. GLUCOSE 5% (MANUFACTURER UNKNOWN) [Suspect]
     Active Substance: DEXTROSE
     Dosage: UNK
     Route: 042
  7. PREDNISOLONE ACETATE. [Concomitant]
     Active Substance: PREDNISOLONE ACETATE
     Indication: NECROTISING RETINITIS
  8. DORZOLAMIDE [Concomitant]
     Active Substance: DORZOLAMIDE
     Indication: INTRAOCULAR PRESSURE TEST
     Route: 061
  9. SULFAMETHOXAZOLE/TRIMETHOPRIM [Suspect]
     Active Substance: SULFAMETHOXAZOLE\TRIMETHOPRIM
     Indication: UVEITIS
     Route: 042
  10. BRIMONIDINE [Concomitant]
     Active Substance: BRIMONIDINE TARTRATE
     Indication: INTRAOCULAR PRESSURE TEST
     Route: 061
  11. ACICLOVIR [Concomitant]
     Active Substance: ACYCLOVIR
     Indication: NECROTISING RETINITIS
     Route: 042

REACTIONS (1)
  - Hyponatraemia [Unknown]
